FAERS Safety Report 7166097-3 (Version None)
Quarter: 2010Q4

REPORT INFORMATION
  Report Type: 
  Country: None (occurrence: None)
  Receive Date: 20101216
  Receipt Date: 20101207
  Transmission Date: 20110411
  Serious: No
  Sender: FDA-Public Use
  Company Number: US-BIOGENIDEC-2010BI043467

PATIENT
  Sex: Male

DRUGS (7)
  1. AVONEX [Suspect]
     Indication: MULTIPLE SCLEROSIS
     Route: 030
     Dates: start: 20061016
  2. TEGRETOL [Concomitant]
     Indication: PAIN
  3. TEGRETOL [Concomitant]
     Indication: ABDOMINAL RIGIDITY
  4. TEGRETOL [Concomitant]
     Indication: MUSCLE SPASMS
  5. BACLOFEN [Concomitant]
     Indication: PAIN
  6. BACLOFEN [Concomitant]
     Indication: ABDOMINAL RIGIDITY
  7. BACLOFEN [Concomitant]
     Indication: MUSCLE SPASMS

REACTIONS (3)
  - GAIT DISTURBANCE [None]
  - NEURALGIA [None]
  - PAIN [None]
